FAERS Safety Report 5158540-6 (Version None)
Quarter: 2006Q4

REPORT INFORMATION
  Report Type: 
  Country: None (occurrence: None)
  Receive Date: 20061128
  Receipt Date: 20061128
  Transmission Date: 20070319
  Serious: Yes (Other)
  Sender: FDA-Public Use
  Company Number: None

PATIENT
  Age: 32 Year
  Sex: Female
  Weight: 104 kg

DRUGS (2)
  1. MIFEPRISTONE [Suspect]
     Dosage: 200MG X ONCE  X1 (^NOW^) ORAL
     Route: 048
     Dates: start: 20061110
  2. MISOPROSTOL [Suspect]
     Dosage: 200MCGX4 24-48 HRS AFTER MIFEPRISTONE VAGINALLY
     Route: 067
     Dates: start: 20061111

REACTIONS (2)
  - HAEMORRHAGE [None]
  - THROMBOCYTOPENIA [None]
